FAERS Safety Report 5018063-1 (Version None)
Quarter: 2006Q2

REPORT INFORMATION
  Report Type: 
  Country: None (occurrence: None)
  Receive Date: 20060530
  Receipt Date: 20060515
  Transmission Date: 20061013
  Serious: Yes (Other)
  Sender: FDA-Public Use
  Company Number: 2006042932

PATIENT
  Age: 67 Year
  Sex: Female
  Weight: 56.6996 kg

DRUGS (12)
  1. ZYVOX [Suspect]
     Indication: MYCOBACTERIUM CHELONEI INFECTION
     Dosage: 1200 MG (60 MG, 2 IN 1 D); SEE IMAGE
     Dates: start: 20051001, end: 20060301
  2. OTHER RESPIRATORY SYSTEM PRODUCTS (OTHER RESPIRATORY SYSTEM PRODUCTS) [Concomitant]
  3. PAXIL [Concomitant]
  4. AZITHROMYCIN [Concomitant]
  5. CLARITHROMYCIN [Concomitant]
  6. PULMICORT [Concomitant]
  7. DUONEB (IPRATROPIUM BROMIDE, SALBUTAMOL SULFATE) [Concomitant]
  8. COMBIVENT [Concomitant]
  9. XANAX [Concomitant]
  10. AMBIEN [Concomitant]
  11. RESTORIL [Concomitant]
  12. FLONASE [Concomitant]

REACTIONS (15)
  - ANOREXIA [None]
  - BLOOD PRESSURE INCREASED [None]
  - CHEST DISCOMFORT [None]
  - DIFFICULTY IN WALKING [None]
  - FALL [None]
  - HAEMATOCRIT DECREASED [None]
  - HAEMOGLOBIN DECREASED [None]
  - HEART RATE INCREASED [None]
  - HYPOAESTHESIA [None]
  - IRON DEFICIENCY [None]
  - NASAL CONGESTION [None]
  - NAUSEA [None]
  - PAIN IN EXTREMITY [None]
  - PARAESTHESIA [None]
  - WEIGHT DECREASED [None]
